FAERS Safety Report 8113462-3 (Version None)
Quarter: 2012Q1

REPORT INFORMATION
  Report Type: 
  Country: None (occurrence: None)
  Receive Date: 20120203
  Receipt Date: 20120124
  Transmission Date: 20120608
  Serious: Yes (Life-Threatening)
  Sender: FDA-Public Use
  Company Number: JP-ABBOTT-11P-087-0885903-00

PATIENT
  Sex: Female
  Weight: 70 kg

DRUGS (16)
  1. HUMIRA [Suspect]
     Indication: RHEUMATOID ARTHRITIS
     Route: 058
     Dates: start: 20091228, end: 20100611
  2. HUMIRA [Suspect]
     Route: 058
     Dates: start: 20100628, end: 20101214
  3. PREDNISOLONE [Concomitant]
     Route: 048
     Dates: start: 20110418, end: 20110807
  4. HALCION [Concomitant]
     Indication: INSOMNIA
     Route: 048
     Dates: start: 20091204
  5. MICARDIS [Concomitant]
     Indication: HYPERTENSION
     Route: 048
     Dates: start: 20100616, end: 20100817
  6. MICARDIS [Concomitant]
     Route: 048
     Dates: start: 20101107
  7. LIVALO [Concomitant]
     Indication: HYPERCHOLESTEROLAEMIA
     Route: 048
     Dates: start: 20100412
  8. PREDNISOLONE [Concomitant]
     Route: 048
     Dates: start: 20110128, end: 20110417
  9. PREDNISOLONE [Concomitant]
     Route: 048
     Dates: start: 20091127, end: 20110123
  10. KETOPROFEN [Concomitant]
     Indication: RHEUMATOID ARTHRITIS
     Dosage: ADEQUATE DOSE DAILY
     Route: 061
     Dates: start: 20091127
  11. PREDNISOLONE [Concomitant]
     Indication: RHEUMATOID ARTHRITIS
     Route: 048
     Dates: start: 20110124, end: 20110224
  12. PREDNISOLONE [Concomitant]
     Route: 048
     Dates: start: 20110808, end: 20111204
  13. FOLIC ACID [Concomitant]
     Indication: PRODUCT USED FOR UNKNOWN INDICATION
     Dates: start: 20091230, end: 20110807
  14. METHOTREXATE [Concomitant]
     Indication: RHEUMATOID ARTHRITIS
     Dates: start: 20091228, end: 20100328
  15. METHOTREXATE [Concomitant]
     Dates: start: 20100329, end: 20110807
  16. AMOBAN [Concomitant]
     Indication: INSOMNIA
     Route: 048
     Dates: start: 20091204

REACTIONS (1)
  - COLON CANCER [None]
